FAERS Safety Report 24292633 (Version 1)
Quarter: 2024Q3

REPORT INFORMATION
  Report Type: Other
  Country: US (occurrence: US)
  Receive Date: 20240906
  Receipt Date: 20240906
  Transmission Date: 20241017
  Serious: Yes (Hospitalization, Other)
  Sender: B BRAUN
  Company Number: US-B.Braun Medical Inc.-2161320

PATIENT
  Age: 39 Year
  Sex: Female

DRUGS (2)
  1. HEPARIN SODIUM IN DEXTROSE [Suspect]
     Active Substance: HEPARIN SODIUM
     Indication: Deep vein thrombosis
  2. ETANERCEPT [Concomitant]
     Active Substance: ETANERCEPT

REACTIONS (7)
  - Haemoglobin decreased [Unknown]
  - Drug ineffective [Unknown]
  - Tachycardia [Unknown]
  - Hypotension [Unknown]
  - Abdominal distension [Unknown]
  - Condition aggravated [Unknown]
  - Haematochezia [Unknown]
